FAERS Safety Report 5602104-4 (Version None)
Quarter: 2008Q1

REPORT INFORMATION
  Report Type: 
  Country: None (occurrence: None)
  Receive Date: 20080125
  Receipt Date: 20080121
  Transmission Date: 20080703
  Serious: Yes (Other)
  Sender: FDA-Public Use
  Company Number: PHNU2008DE00680

PATIENT
  Sex: Female

DRUGS (2)
  1. ESTALIS SEQUI [Suspect]
     Route: 062
  2. COMBIPATCH [Suspect]
     Route: 048

REACTIONS (1)
  - HEARING DISABILITY [None]
